FAERS Safety Report 8020944-1 (Version None)
Quarter: 2011Q4

REPORT INFORMATION
  Report Type: 
  Country: None (occurrence: None)
  Receive Date: 20111228
  Receipt Date: 20111221
  Transmission Date: 20120403
  Serious: Yes (Hospitalization, Other)
  Sender: FDA-Public Use
  Company Number: US-ZYDUS-000239

PATIENT
  Age: 54 Year
  Sex: Female

DRUGS (3)
  1. MYCOPHENOLATE MOFETIL [Suspect]
     Indication: RENAL TRANSPLANT
  2. PREDNISONE TAB [Suspect]
     Indication: RENAL TRANSPLANT
  3. TACROLIMUS [Suspect]
     Indication: RENAL TRANSPLANT

REACTIONS (9)
  - PNEUMONIA [None]
  - CENTRAL NERVOUS SYSTEM LESION [None]
  - ZYGOMYCOSIS [None]
  - CONVULSION [None]
  - PULMONARY CAVITATION [None]
  - VISUAL IMPAIRMENT [None]
  - NERVOUS SYSTEM DISORDER [None]
  - BRAIN ABSCESS [None]
  - NOCARDIOSIS [None]
